FAERS Safety Report 7320545-4 (Version None)
Quarter: 2011Q1

REPORT INFORMATION
  Report Type: 
  Country: None (occurrence: None)
  Receive Date: 20110228
  Receipt Date: 20110223
  Transmission Date: 20110831
  Serious: Yes (Life-Threatening, Hospitalization)
  Sender: FDA-Public Use
  Company Number: GB-PFIZER INC-2011040162

PATIENT
  Age: 76 Year
  Sex: Male

DRUGS (12)
  1. PRAVASTATIN SODIUM [Concomitant]
  2. IRBESARTAN [Concomitant]
  3. DEXAMETHASONE SODIUM PHOSPHATE [Suspect]
     Indication: PROPHYLAXIS OF NAUSEA AND VOMITING
     Dosage: 8 MG, UNK
     Route: 048
     Dates: start: 20110111, end: 20110113
  4. METFORMIN [Concomitant]
  5. ISOSORBIDE MONONITRATE [Concomitant]
  6. GLICLAZIDE [Concomitant]
  7. ONDANSETRON HYDROCHLORIDE [Suspect]
     Indication: PROPHYLAXIS OF NAUSEA AND VOMITING
     Dosage: 8 MG, UNK
     Route: 042
     Dates: start: 20110111, end: 20110111
  8. IRINOTECAN HCL [Suspect]
     Indication: COLON CANCER STAGE IV
     Dosage: 620 MG, UNK
     Route: 042
     Dates: start: 20110111, end: 20110111
  9. AMLODIPINE [Concomitant]
  10. ACETYLSALICYLIC ACID [Concomitant]
  11. BISOPROLOL FUMARATE [Concomitant]
  12. FERROUS SULFATE TAB [Concomitant]

REACTIONS (4)
  - ACUTE MYOCARDIAL INFARCTION [None]
  - VOMITING [None]
  - DIARRHOEA [None]
  - CHEST DISCOMFORT [None]
